FAERS Safety Report 5931061-6 (Version None)
Quarter: 2008Q4

REPORT INFORMATION
  Report Type: 
  Country: None (occurrence: None)
  Receive Date: 20081027
  Receipt Date: 20081020
  Transmission Date: 20090506
  Serious: Yes (Death, Hospitalization, Other)
  Sender: FDA-Public Use
  Company Number: IT-CELGENEUS-083-21880-08100879

PATIENT
  Sex: Female

DRUGS (5)
  1. REVLIMID [Suspect]
     Route: 048
     Dates: start: 20080304, end: 20081009
  2. GLIMEPIRIDE [Concomitant]
     Indication: DRUG USE FOR UNKNOWN INDICATION
     Route: 048
  3. FUROSEMIDE [Concomitant]
     Indication: DRUG USE FOR UNKNOWN INDICATION
     Route: 048
  4. TICLOPIDINE HCL [Concomitant]
     Indication: DRUG USE FOR UNKNOWN INDICATION
     Route: 048
  5. BISOPROLOL FUMARATE [Concomitant]
     Indication: DRUG USE FOR UNKNOWN INDICATION
     Route: 048

REACTIONS (5)
  - CORONARY ARTERY OCCLUSION [None]
  - ISCHAEMIC CARDIOMYOPATHY [None]
  - PARAPARESIS [None]
  - SPINAL COMPRESSION FRACTURE [None]
  - SUDDEN DEATH [None]
